FAERS Safety Report 7837120-5 (Version None)
Quarter: 2011Q4

REPORT INFORMATION
  Report Type: 
  Country: None (occurrence: None)
  Receive Date: 20111024
  Receipt Date: 20111017
  Transmission Date: 20120403
  Serious: Yes (Hospitalization, Other)
  Sender: FDA-Public Use
  Company Number: US-CELGENEUS-163-20785-11093774

PATIENT
  Sex: Female

DRUGS (1)
  1. THALOMID [Suspect]
     Dosage: 100 MILLIGRAM
     Route: 048
     Dates: start: 20110701, end: 20110901

REACTIONS (3)
  - HIP FRACTURE [None]
  - VOMITING [None]
  - PYREXIA [None]
